FAERS Safety Report 18377483 (Version 1)
Quarter: 2020Q4

REPORT INFORMATION
  Report Type: Spontaneous
  Country: US (occurrence: US)
  Receive Date: 20201013
  Receipt Date: 20201013
  Transmission Date: 20210114
  Serious: No
  Sender: FDA-Public Use
  Company Number: US-MYLANLABS-2020M1084374

PATIENT
  Sex: Female
  Weight: 91 kg

DRUGS (1)
  1. LANSOPRAZOLE DELAYED-RELEASE CAPSULES, USP [Suspect]
     Active Substance: LANSOPRAZOLE
     Indication: GASTROOESOPHAGEAL REFLUX DISEASE
     Dosage: TWICE A DAY
     Route: 048
     Dates: start: 20200330, end: 202009

REACTIONS (10)
  - Abdominal pain upper [Recovering/Resolving]
  - Product formulation issue [Unknown]
  - Back pain [Recovering/Resolving]
  - Diarrhoea [Recovering/Resolving]
  - Asthenia [Recovering/Resolving]
  - Therapeutic product effect decreased [Recovering/Resolving]
  - Gastrooesophageal reflux disease [Recovering/Resolving]
  - Chest pain [Recovering/Resolving]
  - Feeding disorder [Recovering/Resolving]
  - Off label use [Recovered/Resolved]
